FAERS Safety Report 5605925-7 (Version None)
Quarter: 2008Q1

REPORT INFORMATION
  Report Type: 
  Country: None (occurrence: None)
  Receive Date: 20080129
  Receipt Date: 20080121
  Transmission Date: 20080703
  Serious: Yes (Hospitalization)
  Sender: FDA-Public Use
  Company Number: KR-ASTRAZENECA-2008AP00553

PATIENT
  Age: 24640 Day
  Sex: Female

DRUGS (5)
  1. IRESSA [Suspect]
     Indication: NON-SMALL CELL LUNG CANCER
     Route: 048
     Dates: start: 20070724, end: 20071018
  2. OXYCONTIN [Concomitant]
     Indication: ANALGESIA
     Route: 048
     Dates: start: 20070724, end: 20071018
  3. CIMETIDINE [Concomitant]
     Indication: ANTIALLERGIC THERAPY
     Route: 048
     Dates: start: 20070724, end: 20071018
  4. ULCERMIN [Concomitant]
     Indication: GASTRIC ULCER
     Dosage: 1P
     Dates: start: 20070724, end: 20071018
  5. MEGACE [Concomitant]
     Indication: ANOREXIA
     Route: 048
     Dates: start: 20070724, end: 20071018

REACTIONS (1)
  - GENERAL PHYSICAL HEALTH DETERIORATION [None]
